FAERS Safety Report 5922301-8 (Version None)
Quarter: 2008Q3

REPORT INFORMATION
  Report Type: 
  Country: None (occurrence: None)
  Receive Date: 20080909
  Receipt Date: 20080114
  Transmission Date: 20090109
  Serious: Yes (Death)
  Sender: FDA-Public Use
  Company Number: 163-20785-07120345

PATIENT
  Age: 29 Year
  Sex: Male

DRUGS (2)
  1. THALOMID [Suspect]
     Indication: METASTASES TO CENTRAL NERVOUS SYSTEM
     Dosage: 400MG-200MG, DAILY, ORAL
     Route: 048
     Dates: start: 20060103, end: 20070101
  2. THALOMID [Suspect]
     Indication: METASTATIC MALIGNANT MELANOMA
     Dosage: 400MG-200MG, DAILY, ORAL
     Route: 048
     Dates: start: 20060103, end: 20070101

REACTIONS (3)
  - BRAIN HERNIATION [None]
  - METASTASES TO CENTRAL NERVOUS SYSTEM [None]
  - NEOPLASM PROGRESSION [None]
